FAERS Safety Report 24367600 (Version 1)
Quarter: 2024Q3

REPORT INFORMATION
  Report Type: Spontaneous
  Country: ES (occurrence: ES)
  Receive Date: 20240926
  Receipt Date: 20240926
  Transmission Date: 20241017
  Serious: Yes (Death, Other)
  Sender: GILEAD
  Company Number: ES-GILEAD-2024-0688886

PATIENT

DRUGS (1)
  1. YESCARTA [Suspect]
     Active Substance: AXICABTAGENE CILOLEUCEL
     Indication: Product used for unknown indication
     Dosage: UNK
     Route: 065
     Dates: start: 20230209, end: 20240209

REACTIONS (1)
  - Disease progression [Fatal]
